FAERS Safety Report 10685124 (Version 4)
Quarter: 2015Q2

REPORT INFORMATION
  Report Type: Spontaneous
  Country: US (occurrence: US)
  Receive Date: 20141231
  Receipt Date: 20150410
  Transmission Date: 20150821
  Serious: No
  Sender: FDA-Public Use
  Company Number: US-PFIZER INC-2014352618

PATIENT
  Age: 62 Year
  Sex: Female

DRUGS (1)
  1. PREMARIN [Suspect]
     Active Substance: ESTROGENS, CONJUGATED
     Indication: OESTROGEN THERAPY
     Dosage: 1GR FOR 2WKS, 1GRX2 FOLLOWING
     Dates: start: 2011

REACTIONS (3)
  - Drug effect decreased [Not Recovered/Not Resolved]
  - Product quality issue [Not Recovered/Not Resolved]
  - Incorrect dose administered [Not Recovered/Not Resolved]
